FAERS Safety Report 7466848-4 (Version None)
Quarter: 2011Q2

REPORT INFORMATION
  Report Type: 
  Country: None (occurrence: None)
  Receive Date: 20110509
  Receipt Date: 20100910
  Transmission Date: 20111010
  Serious: No
  Sender: FDA-Public Use
  Company Number: US-ALEXION-A201001148

PATIENT
  Sex: Female

DRUGS (9)
  1. ACIPHEX [Concomitant]
  2. AXID [Concomitant]
     Dosage: UNK
  3. FOLIC ACID [Concomitant]
     Dosage: UNK
  4. SINGULAIR [Concomitant]
     Dosage: UNK
  5. SOLIRIS [Suspect]
     Dosage: 900 MG, Q2W
     Route: 042
     Dates: start: 20091101
  6. SOLIRIS [Suspect]
     Indication: PAROXYSMAL NOCTURNAL HAEMOGLOBINURIA
     Dosage: 600 MG, QW
     Route: 042
     Dates: start: 20091001, end: 20091101
  7. ZIAC                               /01166101/ [Concomitant]
     Dosage: UNK
  8. TRAMADOL HCL [Concomitant]
     Dosage: UNK
  9. MIRAPEX [Concomitant]
     Dosage: UNK

REACTIONS (2)
  - CERVICAL DYSPLASIA [None]
  - SOMNOLENCE [None]
